FAERS Safety Report 6066404-9 (Version None)
Quarter: 2009Q1

REPORT INFORMATION
  Report Type: 
  Country: None (occurrence: None)
  Receive Date: 20090205
  Receipt Date: 20090127
  Transmission Date: 20090719
  Serious: Yes (Death)
  Sender: FDA-Public Use
  Company Number: JP-PFIZER INC-2009160932

PATIENT

DRUGS (4)
  1. IRINOTECAN HCL [Suspect]
     Indication: RECTAL CANCER
     Route: 042
  2. CETUXIMAB [Suspect]
     Indication: RECTAL CANCER
     Dosage: 250 MG/M2, 1 IN 1 WEEK
     Route: 042
     Dates: start: 20081127, end: 20081225
  3. FLUOROURACIL [Suspect]
     Indication: RECTAL CANCER
     Route: 042
  4. FOLINIC ACID [Suspect]
     Indication: RECTAL CANCER
     Route: 042

REACTIONS (1)
  - CARDIAC FAILURE [None]
